FAERS Safety Report 19970442 (Version 2)
Quarter: 2021Q4

REPORT INFORMATION
  Report Type: Spontaneous
  Country: JP (occurrence: JP)
  Receive Date: 20211019
  Receipt Date: 20211028
  Transmission Date: 20220303
  Serious: Yes (Life-Threatening, Hospitalization)
  Sender: FDA-Public Use
  Company Number: JP-MH-2021M1072557AA

PATIENT
  Age: 43 Year
  Sex: Female
  Weight: 47 kg

DRUGS (5)
  1. CARBOPLATIN [Suspect]
     Active Substance: CARBOPLATIN
     Indication: Uterine cancer
     Dosage: 600 MG ONCE IN 3 OR 4 WEEKS, 6 TIMES
     Route: 041
     Dates: start: 20210427, end: 20210914
  2. PACLITAXEL [Concomitant]
     Active Substance: PACLITAXEL
     Indication: Uterine cancer
     Dosage: 250 MG ONCE IN 3 OR 4 WEEKS, 6 TIMES
     Route: 042
     Dates: start: 20210427, end: 20210914
  3. OLMESARTAN MEDOXOMIL [Concomitant]
     Active Substance: OLMESARTAN MEDOXOMIL
     Indication: Product used for unknown indication
     Dosage: 20 MILLIGRAM, QD
     Route: 048
  4. AMLODIPINE BESYLATE [Concomitant]
     Active Substance: AMLODIPINE BESYLATE
     Indication: Product used for unknown indication
     Dosage: 5 MILLIGRAM, QD
     Route: 048
  5. FEBUXOSTAT [Concomitant]
     Active Substance: FEBUXOSTAT
     Indication: Product used for unknown indication
     Dosage: 10 MILLIGRAM, QD
     Route: 048

REACTIONS (2)
  - Hypomagnesaemia [Recovered/Resolved]
  - Neutrophil count decreased [Unknown]

NARRATIVE: CASE EVENT DATE: 20210925
